FAERS Safety Report 8763387 (Version 3)
Quarter: 2014Q3

REPORT INFORMATION
  Report Type: Spontaneous
  Country: US (occurrence: US)
  Receive Date: 20120830
  Receipt Date: 20140818
  Transmission Date: 20150326
  Serious: Yes (Death, Congenital Anomaly, Other)
  Sender: FDA-Public Use
  Company Number: US-BAYER-2012-087176

PATIENT
  Age: 0 Day
  Sex: Male
  Weight: 2 kg

DRUGS (1)
  1. MIRENA [Suspect]
     Active Substance: LEVONORGESTREL
     Dosage: 20 MCG/24HR, CONT
     Route: 064
     Dates: start: 201112, end: 20120804

REACTIONS (16)
  - Congenital diaphragmatic hernia [Fatal]
  - Respiratory failure [Fatal]
  - Patent ductus arteriosus [None]
  - Pneumomediastinum [None]
  - Exposure during pregnancy [None]
  - Persistent foetal circulation [None]
  - Pulmonary malformation [None]
  - Nonreassuring foetal heart rate pattern [Fatal]
  - Apgar score low [None]
  - Cyanosis neonatal [None]
  - Pneumothorax [None]
  - Pulmonary artery atresia [None]
  - Hypotonia neonatal [None]
  - Neonatal infection [None]
  - Premature baby [None]
  - Bradycardia neonatal [None]

NARRATIVE: CASE EVENT DATE: 20120804
